FAERS Safety Report 11424562 (Version 1)
Quarter: 2015Q3

REPORT INFORMATION
  Report Type: Spontaneous
  Country: MX (occurrence: MX)
  Receive Date: 20150827
  Receipt Date: 20150827
  Transmission Date: 20151125
  Serious: Yes (Other)
  Sender: FDA-Public Use
  Company Number: MX-GE HEALTHCARE MEDICAL DIAGNOSTICS-OMPQ-PR-1508S-1462

PATIENT
  Age: 52 Year

DRUGS (2)
  1. OMNIPAQUE [Suspect]
     Active Substance: IOHEXOL
     Indication: PRODUCT USED FOR UNKNOWN INDICATION
     Dosage: DOSE NOT REPORTED
     Route: 065
     Dates: start: 20150801, end: 20150801
  2. OMNIPAQUE [Suspect]
     Active Substance: IOHEXOL
     Indication: DIAGNOSTIC PROCEDURE

REACTIONS (7)
  - Dyspnoea [Unknown]
  - Heart rate irregular [Unknown]
  - Dysgeusia [Unknown]
  - Asthenia [Unknown]
  - Hypoglycaemia [Unknown]
  - Pyrexia [Unknown]
  - Pain in extremity [Unknown]

NARRATIVE: CASE EVENT DATE: 20150801
